FAERS Safety Report 4892561-3 (Version None)
Quarter: 2006Q1

REPORT INFORMATION
  Report Type: 
  Country: None (occurrence: None)
  Receive Date: 20060126
  Receipt Date: 20050912
  Transmission Date: 20060701
  Serious: Yes (Death)
  Sender: FDA-Public Use
  Company Number: PHFR2005GB03021

PATIENT
  Age: 39 Year
  Sex: Male

DRUGS (2)
  1. CARBAMAZEPINE [Suspect]
     Dosage: 200 MG/DAY
     Route: 065
  2. ALCOHOL [Suspect]

REACTIONS (4)
  - ACCIDENTAL DEATH [None]
  - ALCOHOL POISONING [None]
  - DRUG TOXICITY [None]
  - HEPATIC STEATOSIS [None]
